FAERS Safety Report 4757464-3 (Version None)
Quarter: 2005Q3

REPORT INFORMATION
  Report Type: 
  Country: None (occurrence: None)
  Receive Date: 20050831
  Receipt Date: 20050628
  Transmission Date: 20060218
  Serious: Yes (Other)
  Sender: FDA-Public Use
  Company Number: BE-ROCHE-410224

PATIENT
  Age: 21 Year
  Sex: Female
  Weight: 61 kg

DRUGS (4)
  1. ROACCUTANE [Suspect]
     Indication: ACNE
     Route: 048
     Dates: start: 20041204, end: 20050131
  2. ROACCUTANE [Suspect]
     Route: 048
     Dates: start: 20050208, end: 20050211
  3. ROACCUTANE [Suspect]
     Route: 048
     Dates: start: 20050212, end: 20050705
  4. ROACCUTANE [Suspect]
     Route: 048
     Dates: start: 20050705

REACTIONS (2)
  - DERMAL CYST [None]
  - MILIA [None]
